FAERS Safety Report 6462490-2 (Version None)
Quarter: 2009Q4

REPORT INFORMATION
  Report Type: 
  Country: None (occurrence: None)
  Receive Date: 20091130
  Receipt Date: 20091026
  Transmission Date: 20100525
  Serious: No
  Sender: FDA-Public Use
  Company Number: US-BAYER-200916074BCC

PATIENT
  Age: 39 Year
  Sex: Male
  Weight: 102 kg

DRUGS (3)
  1. ALEVE [Suspect]
     Indication: WOUND
     Dosage: STARTED AT MONDAY, TOOK 2 ON WEDNESDAY, 3 ON THURSDAY, 3 ON FRIDAY, 1 TODAY
     Route: 048
     Dates: start: 20091019
  2. METOPROLOL [Concomitant]
     Route: 065
  3. XANAX [Concomitant]
     Route: 065

REACTIONS (3)
  - ABDOMINAL PAIN UPPER [None]
  - CONSTIPATION [None]
  - SUICIDE ATTEMPT [None]
